FAERS Safety Report 21358189 (Version 3)
Quarter: 2022Q4

REPORT INFORMATION
  Report Type: Other
  Country: US (occurrence: None)
  Receive Date: 20220921
  Receipt Date: 20221117
  Transmission Date: 20230112
  Serious: No
  Sender: FDA-Public Use
  Company Number: US-ROCHE-3183904

PATIENT
  Age: 60 Year
  Sex: Male
  Weight: 81.720 kg

DRUGS (1)
  1. OCREVUS [Suspect]
     Active Substance: OCRELIZUMAB
     Indication: Relapsing multiple sclerosis
     Route: 042

REACTIONS (2)
  - COVID-19 [Recovered/Resolved]
  - Feeling abnormal [Not Recovered/Not Resolved]

NARRATIVE: CASE EVENT DATE: 20220901
